FAERS Safety Report 6523196-4 (Version None)
Quarter: 2009Q4

REPORT INFORMATION
  Report Type: 
  Country: None (occurrence: None)
  Receive Date: 20091230
  Receipt Date: 20091218
  Transmission Date: 20100525
  Serious: Yes (Hospitalization)
  Sender: FDA-Public Use
  Company Number: US-ELI_LILLY_AND_COMPANY-US200912004871

PATIENT
  Age: 43 Year
  Sex: Male

DRUGS (4)
  1. CYMBALTA [Suspect]
     Indication: SCHIZOAFFECTIVE DISORDER BIPOLAR TYPE
     Dosage: 90 MG, UNK
     Dates: start: 20080101
  2. CYMBALTA [Suspect]
     Dosage: 60 MG, UNK
     Dates: start: 20091201, end: 20091201
  3. CYMBALTA [Suspect]
     Dosage: 30 MG, UNK
     Dates: start: 20091201, end: 20091201
  4. ZYPREXA [Suspect]

REACTIONS (12)
  - ADVERSE DRUG REACTION [None]
  - AGITATION [None]
  - ANGER [None]
  - CONFUSIONAL STATE [None]
  - DRUG WITHDRAWAL SYNDROME [None]
  - DYSKINESIA [None]
  - HEPATIC ENZYME INCREASED [None]
  - INSOMNIA [None]
  - MOOD SWINGS [None]
  - NAUSEA [None]
  - NERVOUSNESS [None]
  - OFF LABEL USE [None]
